FAERS Safety Report 9136201 (Version 5)
Quarter: 2014Q4

REPORT INFORMATION
  Report Type: Spontaneous
  Country: US (occurrence: US)
  Receive Date: 20130304
  Receipt Date: 20141015
  Transmission Date: 20150529
  Serious: Yes (Hospitalization, Other)
  Sender: FDA-Public Use
  Company Number: US-GLAXOSMITHKLINE-A1014392A

PATIENT
  Age: 60 Year
  Sex: Female

DRUGS (1)
  1. VENTOLIN HFA [Suspect]
     Active Substance: ALBUTEROL SULFATE
     Indication: ASTHMA
     Dosage: 90 UG, U
     Route: 055
     Dates: start: 1979

REACTIONS (11)
  - Investigation [Unknown]
  - Loss of consciousness [Unknown]
  - Fatigue [Unknown]
  - Melanocytic naevus [Unknown]
  - Abdominal hernia [Unknown]
  - Large intestine perforation [Unknown]
  - Skin cancer [Unknown]
  - Dyspnoea [Unknown]
  - Amnesia [Unknown]
  - Asthma [Unknown]
  - Diverticulitis [Unknown]

NARRATIVE: CASE EVENT DATE: 201204
